FAERS Safety Report 8376960-3 (Version None)
Quarter: 2012Q2

REPORT INFORMATION
  Report Type: 
  Country: None (occurrence: None)
  Receive Date: 20120522
  Receipt Date: 20120510
  Transmission Date: 20120825
  Serious: Yes (Hospitalization)
  Sender: FDA-Public Use
  Company Number: DE-ELI_LILLY_AND_COMPANY-DE201205004355

PATIENT
  Age: 60 Year
  Sex: Male
  Weight: 80 kg

DRUGS (4)
  1. EFFIENT [Suspect]
     Indication: ACUTE MYOCARDIAL INFARCTION
     Dosage: 60 MG, LOADING DOSE
     Dates: start: 20111223
  2. ASPIRIN [Concomitant]
     Dosage: 300-500 MG, LOADING DOSE
  3. ASPIRIN [Concomitant]
     Dosage: 100 MG, QD, MAINTENANCE DOSE
  4. EFFIENT [Suspect]
     Dosage: 10 MG, QD, MAINTENANCE DOSE

REACTIONS (1)
  - DEVICE OCCLUSION [None]
